FAERS Safety Report 6305294-3 (Version None)
Quarter: 2009Q3

REPORT INFORMATION
  Report Type: 
  Country: None (occurrence: None)
  Receive Date: 20090811
  Receipt Date: 20090807
  Transmission Date: 20100115
  Serious: Yes (Death, Hospitalization, Other)
  Sender: FDA-Public Use
  Company Number: PHEH2008US11558

PATIENT
  Sex: Female

DRUGS (2)
  1. GLEEVEC [Suspect]
     Indication: CHROMOSOME ANALYSIS ABNORMAL
     Dosage: 600 MG, QD
     Dates: start: 20060322, end: 20071205
  2. GLEEVEC [Suspect]
     Indication: CHRONIC MYELOID LEUKAEMIA
     Dosage: UNK
     Dates: end: 20071205

REACTIONS (5)
  - ACUTE RESPIRATORY DISTRESS SYNDROME [None]
  - IMMUNOSUPPRESSION [None]
  - PNEUMONIA RESPIRATORY SYNCYTIAL VIRAL [None]
  - SEPSIS [None]
  - STEM CELL TRANSPLANT [None]
